FAERS Safety Report 11259552 (Version 2)
Quarter: 2015Q4

REPORT INFORMATION
  Report Type: Spontaneous
  Country: US (occurrence: US)
  Receive Date: 20150710
  Receipt Date: 20151105
  Transmission Date: 20160304
  Serious: Yes (Hospitalization, Other)
  Sender: FDA-Public Use
  Company Number: US-DSJP-DSU-2015-121032

PATIENT
  Age: 71 Year
  Sex: Female

DRUGS (8)
  1. BENICAR HCT [Suspect]
     Active Substance: HYDROCHLOROTHIAZIDE\OLMESARTAN MEDOXOMIL
     Indication: PRODUCT USED FOR UNKNOWN INDICATION
     Dosage: UNK
     Dates: start: 200602
  2. BENICAR [Suspect]
     Active Substance: OLMESARTAN MEDOXOMIL
     Dosage: UNK
     Dates: end: 201402
  3. OMEPRAZOLE. [Concomitant]
     Active Substance: OMEPRAZOLE
     Indication: PRODUCT USED FOR UNKNOWN INDICATION
     Dosage: UNK
  4. PROPOXYPHENE N/APAP [Concomitant]
     Active Substance: ACETAMINOPHEN\PROPOXYPHENE NAPSYLATE
     Indication: PRODUCT USED FOR UNKNOWN INDICATION
     Dosage: UNK
     Dates: start: 20051024
  5. BENICAR [Suspect]
     Active Substance: OLMESARTAN MEDOXOMIL
     Indication: PRODUCT USED FOR UNKNOWN INDICATION
     Dosage: 20 MG, QD
     Route: 048
     Dates: start: 20060206, end: 20130606
  6. BENICAR HCT [Suspect]
     Active Substance: HYDROCHLOROTHIAZIDE\OLMESARTAN MEDOXOMIL
     Dosage: 40/12.5 MG, QD
     Dates: start: 20061103, end: 20070426
  7. BENICAR HCT [Suspect]
     Active Substance: HYDROCHLOROTHIAZIDE\OLMESARTAN MEDOXOMIL
     Dosage: 20/12/5 MG, QD
     Dates: start: 20070821
  8. BENICAR [Suspect]
     Active Substance: OLMESARTAN MEDOXOMIL
     Dosage: 40 MG, QD
     Route: 048
     Dates: start: 2013, end: 201402

REACTIONS (26)
  - Acute kidney injury [Unknown]
  - Acute prerenal failure [Unknown]
  - Bile duct stone [Unknown]
  - Gastritis erosive [Unknown]
  - Altered state of consciousness [Unknown]
  - Orthostatic hypotension [Unknown]
  - Abdominal adhesions [Unknown]
  - Coeliac disease [Unknown]
  - Confusional state [Unknown]
  - Chronic kidney disease [Unknown]
  - Pancreatitis [Unknown]
  - Metabolic acidosis [Unknown]
  - Gastrointestinal haemorrhage [Unknown]
  - Renal failure [Unknown]
  - Electrolyte imbalance [Unknown]
  - Enterobacter sepsis [Recovered/Resolved]
  - Oliguria [Unknown]
  - Intestinal obstruction [Unknown]
  - Anaemia [Unknown]
  - Hypoalbuminaemia [Unknown]
  - Enteritis [Unknown]
  - Malabsorption [Unknown]
  - Hepatosplenomegaly [Unknown]
  - Nephrolithiasis [Unknown]
  - Leukocytosis [Unknown]
  - Peptic ulcer [Unknown]

NARRATIVE: CASE EVENT DATE: 201111
